FAERS Safety Report 5075393-5 (Version None)
Quarter: 2006Q3

REPORT INFORMATION
  Report Type: 
  Country: None (occurrence: None)
  Receive Date: 20060804
  Receipt Date: 20060724
  Transmission Date: 20061208
  Serious: Yes (Other)
  Sender: FDA-Public Use
  Company Number: 2006091724

PATIENT
  Age: 82 Year
  Sex: Female

DRUGS (2)
  1. CARDENALIN (DOXAZOSIN) [Suspect]
     Indication: DRUG USE FOR UNKNOWN INDICATION
     Dosage: ORAL
     Route: 048
  2. DRUG (DRUG) [Suspect]
     Indication: DRUG USE FOR UNKNOWN INDICATION

REACTIONS (2)
  - DEPRESSED LEVEL OF CONSCIOUSNESS [None]
  - MULTIPLE DRUG OVERDOSE [None]
